FAERS Safety Report 21274366 (Version 1)
Quarter: 2022Q3

REPORT INFORMATION
  Report Type: Report from Study
  Country: ES (occurrence: ES)
  Receive Date: 20220831
  Receipt Date: 20220831
  Transmission Date: 20221027
  Serious: Yes (Other)
  Sender: FDA-Public Use
  Company Number: None

PATIENT
  Age: 74 Year
  Sex: Female

DRUGS (1)
  1. RINVOQ [Suspect]
     Active Substance: UPADACITINIB
     Indication: Rheumatoid arthritis
     Dosage: 15 MG PER DAY, 28 TABLETS
     Route: 048
     Dates: start: 20210623

REACTIONS (1)
  - Viral corneal ulcer [Recovered/Resolved]

NARRATIVE: CASE EVENT DATE: 20211007
